FAERS Safety Report 14943237 (Version 1)
Quarter: 2018Q2

REPORT INFORMATION
  Report Type: Spontaneous
  Country: IT (occurrence: IT)
  Receive Date: 20180528
  Receipt Date: 20180528
  Transmission Date: 20180711
  Serious: Yes (Hospitalization)
  Sender: FDA-Public Use
  Company Number: IT-ROCHE-2130370

PATIENT
  Age: 71 Year
  Sex: Female

DRUGS (1)
  1. ROACTEMRA [Suspect]
     Active Substance: TOCILIZUMAB
     Indication: RHEUMATOID ARTHRITIS
     Dosage: MOST RECENT DOSE PRIOR TO THE EVENT 05/DEC/2017
     Route: 058
     Dates: start: 20130129

REACTIONS (3)
  - Pneumonitis [Recovering/Resolving]
  - Nocardiosis [Recovering/Resolving]
  - Empyema [Recovering/Resolving]

NARRATIVE: CASE EVENT DATE: 20171219
